FAERS Safety Report 6288246-1 (Version None)
Quarter: 2009Q3

REPORT INFORMATION
  Report Type: 
  Country: None (occurrence: None)
  Receive Date: 20090729
  Receipt Date: 20090720
  Transmission Date: 20100115
  Serious: Yes (Other)
  Sender: FDA-Public Use
  Company Number: US-JNJFOC-20090401207

PATIENT
  Sex: Male
  Weight: 99.79 kg

DRUGS (15)
  1. REMICADE [Suspect]
     Route: 042
  2. REMICADE [Suspect]
     Route: 042
  3. REMICADE [Suspect]
     Route: 042
  4. REMICADE [Suspect]
     Dosage: STOPPED SUMMER 2008
     Route: 042
  5. REMICADE [Suspect]
     Route: 042
  6. REMICADE [Suspect]
     Indication: CROHN'S DISEASE
     Route: 042
  7. BENADRYL [Concomitant]
     Indication: PREMEDICATION
  8. TYLENOL [Concomitant]
     Indication: PREMEDICATION
  9. CELEBREX [Concomitant]
  10. PROTONIC [Concomitant]
  11. ASPIRIN [Concomitant]
  12. IMURAN [Concomitant]
     Indication: CROHN'S DISEASE
  13. PENTASA [Concomitant]
     Indication: CROHN'S DISEASE
  14. MULTI-VITAMIN [Concomitant]
  15. COUMADIN [Concomitant]

REACTIONS (9)
  - ARTHRALGIA [None]
  - DEVICE RELATED INFECTION [None]
  - INFECTION [None]
  - INFUSION RELATED REACTION [None]
  - KNEE ARTHROPLASTY [None]
  - MALAISE [None]
  - OEDEMA PERIPHERAL [None]
  - PAIN [None]
  - SKIN WARM [None]
